FAERS Safety Report 15660024 (Version 1)
Quarter: 2018Q4

REPORT INFORMATION
  Report Type: Spontaneous
  Country: US (occurrence: US)
  Receive Date: 20181127
  Receipt Date: 20181127
  Transmission Date: 20190205
  Serious: No
  Sender: FDA-Public Use
  Company Number: US-DRREDDYS-USA/USA/18/0105319

PATIENT
  Age: 83 Year
  Sex: Female

DRUGS (1)
  1. NICOTINE. [Suspect]
     Active Substance: NICOTINE
     Indication: SMOKING CESSATION THERAPY
     Dosage: STAGE 2,DOSE WAS NOT CHANGED AFTER THE EVENT.
     Route: 062
     Dates: start: 20181107

REACTIONS (1)
  - Tobacco withdrawal symptoms [Unknown]

NARRATIVE: CASE EVENT DATE: 20181107
